FAERS Safety Report 16620158 (Version 1)
Quarter: 2019Q3

REPORT INFORMATION
  Report Type: Report from Study
  Country: US (occurrence: US)
  Receive Date: 20190723
  Receipt Date: 20190723
  Transmission Date: 20191004
  Serious: Yes (Hospitalization)
  Sender: FDA-Public Use
  Company Number: US-ACTELION-A-US2017-163059

PATIENT
  Age: 69 Year
  Sex: Female

DRUGS (2)
  1. OXYGEN. [Concomitant]
     Active Substance: OXYGEN
  2. OPSUMIT [Suspect]
     Active Substance: MACITENTAN
     Indication: PULMONARY ARTERIAL HYPERTENSION
     Dosage: 10 MG, QD
     Route: 048
     Dates: start: 20170929

REACTIONS (7)
  - Anaemia [Unknown]
  - Nasal congestion [Unknown]
  - Aphonia [Unknown]
  - Intestinal haemorrhage [Recovering/Resolving]
  - Nasal dryness [Unknown]
  - Hypoxia [Unknown]
  - Dry mouth [Unknown]

NARRATIVE: CASE EVENT DATE: 20171020
